FAERS Safety Report 25096990 (Version 1)
Quarter: 2025Q1

REPORT INFORMATION
  Report Type: Spontaneous
  Country: JP (occurrence: JP)
  Receive Date: 20250319
  Receipt Date: 20250319
  Transmission Date: 20250409
  Serious: Yes (Other)
  Sender: ALEXION PHARMACEUTICALS
  Company Number: JP-ASTRAZENECA-250024945_063010_P_1

PATIENT

DRUGS (1)
  1. DAPAGLIFLOZIN [Suspect]
     Active Substance: DAPAGLIFLOZIN
     Indication: Type 2 diabetes mellitus

REACTIONS (5)
  - Pneumonia bacterial [Unknown]
  - Pancreatic infarction [Unknown]
  - Atrial fibrillation [Unknown]
  - Bipolar I disorder [Unknown]
  - Type 1 diabetes mellitus [Unknown]
